FAERS Safety Report 7813645-3 (Version None)
Quarter: 2011Q4

REPORT INFORMATION
  Report Type: 
  Country: None (occurrence: None)
  Receive Date: 20111014
  Receipt Date: 20090716
  Transmission Date: 20120403
  Serious: No
  Sender: FDA-Public Use
  Company Number: 2009BI022390

PATIENT
  Age: 37 Year
  Sex: Female

DRUGS (4)
  1. AVONEX [Concomitant]
     Indication: MULTIPLE SCLEROSIS
     Route: 030
     Dates: start: 20081110
  2. TYSABRI [Suspect]
     Route: 042
     Dates: start: 20100928, end: 20101117
  3. AVONEX [Concomitant]
     Route: 030
     Dates: start: 20060206
  4. TYSABRI [Suspect]
     Indication: MULTIPLE SCLEROSIS
     Route: 042
     Dates: start: 20090612, end: 20100318

REACTIONS (6)
  - DYSPHONIA [None]
  - PALPITATIONS [None]
  - DIZZINESS [None]
  - RASH PRURITIC [None]
  - CARPAL TUNNEL SYNDROME [None]
  - RASH [None]
